FAERS Safety Report 4752943-7 (Version None)
Quarter: 2005Q3

REPORT INFORMATION
  Report Type: 
  Country: None (occurrence: None)
  Receive Date: 20050823
  Receipt Date: 20050809
  Transmission Date: 20060218
  Serious: No
  Sender: FDA-Public Use
  Company Number: 05H-163-0302073-00

PATIENT
  Age: 87 Year
  Sex: Female

DRUGS (2)
  1. DEMEROL [Suspect]
     Indication: ANALGESIC EFFECT
     Dosage: 25 MG, ONCE, INTRAVENOUS
     Route: 042
     Dates: start: 20050720, end: 20050720
  2. DEMEROL [Suspect]
     Indication: ANALGESIC EFFECT
     Dosage: 250 ML, INTRAVENOUS
     Route: 042
     Dates: start: 20050720, end: 20050720

REACTIONS (6)
  - DEPRESSED LEVEL OF CONSCIOUSNESS [None]
  - INCORRECT DRUG ADMINISTRATION RATE [None]
  - LETHARGY [None]
  - MEDICATION ERROR [None]
  - OVERDOSE [None]
  - OXYGEN SATURATION DECREASED [None]
